FAERS Safety Report 9848777 (Version 2)
Quarter: 2014Q1

REPORT INFORMATION
  Report Type: Spontaneous
  Country: LU (occurrence: LU)
  Receive Date: 20140128
  Receipt Date: 20140218
  Transmission Date: 20141002
  Serious: Yes (Other)
  Sender: FDA-Public Use
  Company Number: LU-ABBVIE-14P-098-1194296-00

PATIENT
  Sex: Female
  Weight: 50 kg

DRUGS (3)
  1. HUMIRA [Suspect]
     Indication: CROHN^S DISEASE
     Route: 058
     Dates: start: 20091005, end: 201006
  2. HUMIRA [Suspect]
     Route: 058
     Dates: start: 201012, end: 20140116
  3. COBALAMIN [Concomitant]
     Indication: VITAMIN B12 DEFICIENCY
     Dates: start: 2013

REACTIONS (3)
  - Multiple sclerosis [Not Recovered/Not Resolved]
  - Paraesthesia [Unknown]
  - Crohn^s disease [Unknown]
